FAERS Safety Report 20521333 (Version 1)
Quarter: 2022Q1

REPORT INFORMATION
  Report Type: Spontaneous
  Country: US (occurrence: US)
  Receive Date: 20220226
  Receipt Date: 20220226
  Transmission Date: 20220424
  Serious: Yes (Other)
  Sender: FDA-Public Use
  Company Number: US-GILEAD-2022-0570826

PATIENT
  Age: 56 Year
  Sex: Male
  Weight: 97.8 kg

DRUGS (1)
  1. YESCARTA [Suspect]
     Active Substance: AXICABTAGENE CILOLEUCEL
     Indication: Diffuse large B-cell lymphoma
     Dosage: UNK
     Route: 042
     Dates: start: 20211220, end: 20211220

REACTIONS (8)
  - Cytokine release syndrome [Recovered/Resolved]
  - Arrhythmia [Unknown]
  - Tachycardia [Unknown]
  - Headache [Unknown]
  - Hypoxia [Unknown]
  - Fatigue [Unknown]
  - Hypoalbuminaemia [Unknown]
  - Diarrhoea [Unknown]

NARRATIVE: CASE EVENT DATE: 20211221
